FAERS Safety Report 21538866 (Version 2)
Quarter: 2022Q4

REPORT INFORMATION
  Report Type: Report from Study
  Country: IL (occurrence: IL)
  Receive Date: 20221102
  Receipt Date: 20221115
  Transmission Date: 20230112
  Serious: Yes (Other)
  Sender: FDA-Public Use
  Company Number: IL-ABBVIE-21K-082-3897819-00

PATIENT
  Age: 73 Year
  Sex: Male

DRUGS (8)
  1. CARBIDOPA\LEVODOPA [Suspect]
     Active Substance: CARBIDOPA\LEVODOPA
     Indication: Parkinson^s disease
     Dosage: MORNING DOSE 9.0ML, CONTINUOUS DOSE 2.6ML/HOUR, EXTRA DOSE 1ML?DOSE INCREASED
     Route: 050
     Dates: start: 20210426, end: 2021
  2. CARBIDOPA\LEVODOPA [Suspect]
     Active Substance: CARBIDOPA\LEVODOPA
     Dosage: MORNING DOSE 10.0ML, CONTINUOUS DOSE 2.6ML/HOUR, EXTRA DOSE 1.5ML
     Route: 050
     Dates: start: 2021, end: 2021
  3. CARBIDOPA\LEVODOPA [Suspect]
     Active Substance: CARBIDOPA\LEVODOPA
     Dosage: MORNING DOSE 10.0ML, CONTINUOUS DOSE 3.0ML/HOUR, EXTRA DOSE 1.5ML
     Route: 050
     Dates: start: 2021, end: 2021
  4. CARBIDOPA\LEVODOPA [Suspect]
     Active Substance: CARBIDOPA\LEVODOPA
     Dosage: MD 10.0ML, CD 3.3ML/HOUR, ED 1.5ML
     Route: 050
     Dates: start: 20210513, end: 2021
  5. CARBIDOPA\LEVODOPA [Suspect]
     Active Substance: CARBIDOPA\LEVODOPA
     Dosage: MD 10.0ML, CD 3.0ML/HOUR, ED 1.5ML
     Route: 050
     Dates: start: 2021, end: 2021
  6. CARBIDOPA\LEVODOPA [Suspect]
     Active Substance: CARBIDOPA\LEVODOPA
     Dosage: MORNING DOSAGE(ML) 11.0 , CONTINUOUS DOSAGE (ML/H) 3.5
     Route: 050
     Dates: start: 2021
  7. CARBIDOPA\LEVODOPA [Suspect]
     Active Substance: CARBIDOPA\LEVODOPA
     Route: 050
  8. ENSURE [Concomitant]
     Active Substance: AMINO ACIDS\DEXTROSE\ELECTROLYTES NOS\SOYBEAN OIL\VITAMINS
     Indication: Product used for unknown indication

REACTIONS (9)
  - Choking [Recovered/Resolved]
  - Musculoskeletal stiffness [Unknown]
  - Restlessness [Unknown]
  - Therapeutic product effect incomplete [Unknown]
  - On and off phenomenon [Unknown]
  - Dysphagia [Recovering/Resolving]
  - Dyskinesia [Recovered/Resolved]
  - Gait disturbance [Unknown]
  - Loss of consciousness [Recovered/Resolved]

NARRATIVE: CASE EVENT DATE: 20221029
